FAERS Safety Report 6021116-2 (Version None)
Quarter: 2008Q4

REPORT INFORMATION
  Report Type: 
  Country: None (occurrence: None)
  Receive Date: 20081229
  Receipt Date: 20081215
  Transmission Date: 20090506
  Serious: Yes (Death)
  Sender: FDA-Public Use
  Company Number: US-PFIZER INC-2008153530

PATIENT
  Age: 52 Year
  Sex: Female

DRUGS (5)
  1. SERTRALINE HCL [Suspect]
     Route: 048
  2. CLONAZEPAM [Suspect]
     Route: 048
  3. TRAZODONE HCL [Suspect]
     Route: 048
  4. AMITRIPTYLINE [Suspect]
     Route: 048
  5. HYDROCODONE BITARTRATE + ACETAMINOPHEN [Suspect]
     Route: 048

REACTIONS (3)
  - CARDIAC ARREST [None]
  - COMPLETED SUICIDE [None]
  - RESPIRATORY ARREST [None]
